FAERS Safety Report 6356908-3 (Version None)
Quarter: 2009Q3

REPORT INFORMATION
  Report Type: 
  Country: None (occurrence: None)
  Receive Date: 20090915
  Receipt Date: 20090903
  Transmission Date: 20100115
  Serious: Yes (Other)
  Sender: FDA-Public Use
  Company Number: IN-JNJFOC-20090902433

PATIENT

DRUGS (2)
  1. INFLIXIMAB [Suspect]
     Indication: JUVENILE ARTHRITIS
     Route: 042
  2. METHOTREXATE [Concomitant]

REACTIONS (2)
  - ANAEMIA [None]
  - SKIN LESION [None]
